FAERS Safety Report 8093482-8 (Version None)
Quarter: 2012Q1

REPORT INFORMATION
  Report Type: 
  Country: None (occurrence: None)
  Receive Date: 20120129
  Receipt Date: 20110901
  Transmission Date: 20120608
  Serious: Yes (Hospitalization)
  Sender: FDA-Public Use
  Company Number: US-ABBOTT-11P-163-0851568-00

PATIENT
  Sex: Female
  Weight: 81.72 kg

DRUGS (5)
  1. HUMIRA [Suspect]
     Indication: COLITIS ULCERATIVE
     Dosage: LOADING DOSE
     Route: 058
     Dates: start: 20110825, end: 20110825
  2. KEFLEX [Suspect]
     Indication: NASAL OPERATION
  3. HUMIRA [Suspect]
  4. FOSAMAX [Concomitant]
     Indication: OSTEOPOROSIS
  5. KEFLEX [Suspect]
     Indication: PROPHYLAXIS
     Dates: start: 20110801, end: 20110801

REACTIONS (2)
  - CLOSTRIDIAL INFECTION [None]
  - COLITIS ULCERATIVE [None]
